FAERS Safety Report 8917041 (Version 3)
Quarter: 2014Q1

REPORT INFORMATION
  Report Type: Spontaneous
  Country: DK (occurrence: DK)
  Receive Date: 20121120
  Receipt Date: 20140128
  Transmission Date: 20141002
  Serious: Yes (Hospitalization, Disabling)
  Sender: FDA-Public Use
  Company Number: DK-JNJFOC-20121106426

PATIENT
  Age: 57 Year
  Sex: Female

DRUGS (1)
  1. SPORANOX [Suspect]
     Indication: ONYCHOMYCOSIS
     Route: 048
     Dates: start: 20120415, end: 20120525

REACTIONS (10)
  - Paraesthesia [Unknown]
  - Burning sensation [Unknown]
  - Fatigue [Recovered/Resolved]
  - Polyneuropathy [Recovering/Resolving]
  - Myalgia [Unknown]
  - Balance disorder [Not Recovered/Not Resolved]
  - Liver disorder [Unknown]
  - Pain in extremity [Not Recovered/Not Resolved]
  - Fatigue [Unknown]
  - Limb discomfort [Recovered/Resolved]
